FAERS Safety Report 15379275 (Version 2)
Quarter: 2018Q4

REPORT INFORMATION
  Report Type: Spontaneous
  Country: US (occurrence: US)
  Receive Date: 20180913
  Receipt Date: 20181001
  Transmission Date: 20190204
  Serious: Yes (Other)
  Sender: FDA-Public Use
  Company Number: US-JNJFOC-20180805287

PATIENT
  Sex: Female
  Weight: 127.01 kg

DRUGS (17)
  1. NEOSPORIN PAIN ITCH SCAR [Suspect]
     Active Substance: BACITRACIN ZINC\NEOMYCIN SULFATE\POLYMYXIN B SULFATE\PRAMOXINE HYDROCHLORIDE
     Indication: PRODUCT USED FOR UNKNOWN INDICATION
     Route: 065
  2. NEUTROGENA NORWEGIAN FORMULA LIP MOISTURIZER SPF15 [Suspect]
     Active Substance: OCTINOXATE\OXYBENZONE
     Indication: PRODUCT USED FOR UNKNOWN INDICATION
     Route: 065
  3. AVEENO POSITIVELY RADIANT BODY LOTION 12OZ CREAM [Suspect]
     Active Substance: COSMETICS
     Indication: PRODUCT USED FOR UNKNOWN INDICATION
     Route: 065
  4. NEUTROGENA MAKEUP REMOVER CLEANSING TOWEL 25S REFF UNSPECIFIED [Suspect]
     Active Substance: COSMETICS
     Indication: PRODUCT USED FOR UNKNOWN INDICATION
     Route: 065
  5. AVEENO ULTRA CALMING MOIST LOTION 1.7OZ (AVEENO ULTRA-CALMING) CREAM [Suspect]
     Active Substance: COSMETICS
     Indication: PRODUCT USED FOR UNKNOWN INDICATION
     Route: 065
  6. NEUTROGENA NORWEGIAN FORMULA HAND CREAM [Suspect]
     Active Substance: COSMETICS
     Indication: PRODUCT USED FOR UNKNOWN INDICATION
     Route: 065
  7. NEUTROGENA NORWEGIAN  HAND FORMULA CREAM FRAGRANCE FREE [Suspect]
     Active Substance: COSMETICS
     Indication: PRODUCT USED FOR UNKNOWN INDICATION
     Route: 065
  8. JOHNSONS BABY POWDER (TALC) [Suspect]
     Active Substance: TALC
     Indication: PRODUCT USED FOR UNKNOWN INDICATION
     Route: 065
  9. JOHNSONS AND JOHNSONS BABY BEDTIME LOTION UNSPECIFIED [Suspect]
     Active Substance: COSMETICS
     Indication: PRODUCT USED FOR UNKNOWN INDICATION
     Route: 065
  10. JOHNSONS AND JOHNSONS BABY BUBBLE BATH / + WASH UNSPECIFIED [Suspect]
     Active Substance: COSMETICS
     Indication: PRODUCT USED FOR UNKNOWN INDICATION
     Route: 065
  11. LUBRIDERM FOR MEN 3-IN-1 LIGHT FRAGRANCE [Concomitant]
     Indication: PRODUCT USED FOR UNKNOWN INDICATION
     Route: 065
  12. OGX HYDRATE PLUS DEFRIZZ OIL UNSPECIFIED [Suspect]
     Active Substance: COSMETICS
     Indication: PRODUCT USED FOR UNKNOWN INDICATION
     Route: 065
  13. AVEENO BABY MOISTURIZING LOTION UNSPECIFIED [Suspect]
     Active Substance: DIMETHICONE
     Indication: PRODUCT USED FOR UNKNOWN INDICATION
     Route: 065
  14. MAUI MOISTURE CURL QUENCH COCONUT OIL SHAMPOO 19.5OZ SHAMPOO [Suspect]
     Active Substance: COSMETICS
     Indication: PRODUCT USED FOR UNKNOWN INDICATION
     Route: 065
  15. MAUI MOISTURE CURL QUENCH COCONUT OIL CONDITIONER 19.5OZ SHAMPOO [Suspect]
     Active Substance: COSMETICS
     Indication: PRODUCT USED FOR UNKNOWN INDICATION
     Route: 065
  16. MAUI MOISTURE CURL QUENCH COCONUT OIL CURL SMOOTHIE 12OZ [Suspect]
     Active Substance: COSMETICS
     Indication: PRODUCT USED FOR UNKNOWN INDICATION
     Route: 065
  17. NEUTROGENA HYDRO BOOST WATER GEL 1.7 OZ [Suspect]
     Active Substance: COSMETICS
     Indication: PRODUCT USED FOR UNKNOWN INDICATION
     Route: 065

REACTIONS (4)
  - Abortion spontaneous [Unknown]
  - Exposure during pregnancy [Unknown]
  - Ectopic pregnancy [Unknown]
  - Paternal exposure during pregnancy [Unknown]
